FAERS Safety Report 9515099 (Version 2)
Quarter: 2014Q1

REPORT INFORMATION
  Report Type: Spontaneous
  Country: US (occurrence: None)
  Receive Date: 20130305
  Receipt Date: 20140306
  Transmission Date: 20141002
  Serious: Yes (Other)
  Sender: FDA-Public Use
  Company Number: 163-21880-12121961

PATIENT
  Age: 84 Year
  Sex: Female
  Weight: 57.6 kg

DRUGS (11)
  1. REVLIMID [Suspect]
     Indication: MYELODYSPLASTIC SYNDROME
     Dosage: 5 MG, 1 IN 2 D, PO
     Route: 048
     Dates: start: 20101001
  2. NIACIN (NICOTINIC ACID) (UNKNOWN) [Concomitant]
  3. PAIN MEDICATION (OTHER ANALGESICS AND ANTIPYRETICS) [Concomitant]
  4. SPIRONOLACTONE (SPIRONOLACTONE) [Concomitant]
  5. ZOCOR (SIMVASTATIN) [Concomitant]
  6. ZOLOFT (SERTRALINE HYDROCHLORIDE) [Concomitant]
  7. JANUVIA (SITAGLIPTIN PHOSPHATE) [Concomitant]
  8. PRADAXA (DABIGATRAN ETEXILATE MESILATE) [Concomitant]
  9. ATENOLOL (ATENOLOL) [Concomitant]
  10. LEVOTHYROXINE SODIUM (LEVOTHYROXINE SODIUM) [Concomitant]
  11. DIGOXIN (DIGOXIN) [Concomitant]

REACTIONS (6)
  - Spinal fracture [None]
  - Back pain [None]
  - Fall [None]
  - Pruritus [None]
  - Bone pain [None]
  - Spinal compression fracture [None]
